FAERS Safety Report 16262712 (Version 2)
Quarter: 2019Q3

REPORT INFORMATION
  Report Type: Report from Study
  Country: FR (occurrence: FR)
  Receive Date: 20190502
  Receipt Date: 20190930
  Transmission Date: 20191004
  Serious: Yes (Other)
  Sender: FDA-Public Use
  Company Number: FR-ROCHE-2309262

PATIENT
  Age: 65 Year
  Sex: Female

DRUGS (3)
  1. NOVOSEVEN [Concomitant]
     Active Substance: COAGULATION FACTOR VIIA RECOMBINANT HUMAN
  2. RITUXIMAB. [Suspect]
     Active Substance: RITUXIMAB
     Indication: ACQUIRED HAEMOPHILIA WITH ANTI FVIII, XI, OR XIII
     Route: 042
  3. METHYLPREDNISOLONE. [Suspect]
     Active Substance: METHYLPREDNISOLONE
     Indication: ACQUIRED HAEMOPHILIA WITH ANTI FVIII, XI, OR XIII
     Route: 050

REACTIONS (5)
  - Diabetic metabolic decompensation [Unknown]
  - Anaphylactic reaction [Recovered/Resolved]
  - Intentional product use issue [Unknown]
  - Staphylococcal bacteraemia [Unknown]
  - Off label use [Unknown]
